FAERS Safety Report 10643256 (Version 1)
Quarter: 2014Q4

REPORT INFORMATION
  Report Type: Spontaneous
  Country: US (occurrence: None)
  Receive Date: 20141209
  Receipt Date: 20141209
  Transmission Date: 20150529
  Serious: No
  Sender: FDA-Public Use
  Company Number: None

PATIENT
  Age: 45 Year
  Sex: Male
  Weight: 78 kg

DRUGS (1)
  1. POLYETHYLENE GLUCOL [Suspect]
     Active Substance: POLYETHYLENE GLYCOLS
     Indication: CONSTIPATION
     Route: 048
     Dates: start: 20140810

REACTIONS (3)
  - Anaphylactic reaction [None]
  - Wheezing [None]
  - Pharyngeal oedema [None]

NARRATIVE: CASE EVENT DATE: 20140810
